FAERS Safety Report 16782592 (Version 1)
Quarter: 2019Q3

REPORT INFORMATION
  Report Type: Spontaneous
  Country: US (occurrence: US)
  Receive Date: 20190906
  Receipt Date: 20190906
  Transmission Date: 20191005
  Serious: Yes (Other)
  Sender: FDA-Public Use
  Company Number: US-BAUSCH-BL-2019-024927

PATIENT
  Age: 82 Year
  Weight: 90.8 kg

DRUGS (6)
  1. LOTEMAX [Suspect]
     Active Substance: LOTEPREDNOL ETABONATE
     Dosage: REDUCED DOSE
     Route: 047
     Dates: start: 201908, end: 20190828
  2. LOTEMAX [Suspect]
     Active Substance: LOTEPREDNOL ETABONATE
     Indication: INTRAOCULAR PRESSURE TEST
     Route: 047
     Dates: start: 2016
  3. LOTEMAX [Suspect]
     Active Substance: LOTEPREDNOL ETABONATE
     Dosage: REDUCED DOSE
     Route: 047
     Dates: end: 201908
  4. LOTEMAX [Suspect]
     Active Substance: LOTEPREDNOL ETABONATE
     Dosage: INCREASED DOSE
     Route: 047
     Dates: start: 2017, end: 2017
  5. LOTEMAX [Suspect]
     Active Substance: LOTEPREDNOL ETABONATE
     Indication: EYE PAIN
     Dosage: ONE DROP IN THE LEFT EYE
     Route: 047
     Dates: start: 2017, end: 2017
  6. LOTEMAX [Suspect]
     Active Substance: LOTEPREDNOL ETABONATE
     Dosage: REDUCED DOSE
     Route: 047
     Dates: start: 2017, end: 2017

REACTIONS (7)
  - Product prescribing error [Unknown]
  - Therapy cessation [Unknown]
  - Insurance issue [Unknown]
  - Intraocular lens implant [Unknown]
  - Intentional product use issue [Unknown]
  - Eye pain [Not Recovered/Not Resolved]
  - Inability to afford medication [Unknown]

NARRATIVE: CASE EVENT DATE: 2017
